FAERS Safety Report 14631761 (Version 3)
Quarter: 2018Q1

REPORT INFORMATION
  Report Type: Spontaneous
  Country: ES (occurrence: ES)
  Receive Date: 20180313
  Receipt Date: 20180327
  Transmission Date: 20180509
  Serious: Yes (Other)
  Sender: FDA-Public Use
  Company Number: ES-GILEAD-2018-0325136

PATIENT
  Age: 46 Year

DRUGS (7)
  1. METHADONE [Concomitant]
     Active Substance: METHADONE HYDROCHLORIDE
     Dosage: 15 MG, QD
  2. METHADONE [Concomitant]
     Active Substance: METHADONE HYDROCHLORIDE
     Dosage: 80 MG, QD
  3. EFAVIRENZ. [Concomitant]
     Active Substance: EFAVIRENZ
  4. FLUNITRAZEPAM [Concomitant]
     Active Substance: FLUNITRAZEPAM
     Dosage: 1 MG, 2-3
  5. ALPRAZOLAM. [Concomitant]
     Active Substance: ALPRAZOLAM
     Dosage: 2 MG, 1-2 PER DAY
  6. TRUVADA [Suspect]
     Active Substance: EMTRICITABINE\TENOFOVIR DISOPROXIL FUMARATE
     Indication: HIV INFECTION
     Dosage: UNK
     Route: 065
     Dates: start: 200805
  7. ETRAVIRINE [Concomitant]
     Active Substance: ETRAVIRINE

REACTIONS (5)
  - Weight decreased [Unknown]
  - Neurodermatitis [Unknown]
  - Nervous system disorder [Unknown]
  - Treatment noncompliance [Unknown]
  - Drug withdrawal maintenance therapy [Unknown]
